FAERS Safety Report 15592715 (Version 4)
Quarter: 2019Q2

REPORT INFORMATION
  Report Type: Spontaneous
  Country: US (occurrence: US)
  Receive Date: 20181106
  Receipt Date: 20190425
  Transmission Date: 20190711
  Serious: No
  Sender: FDA-Public Use
  Company Number: US-PFIZER INC-2018444935

PATIENT
  Age: 92 Year
  Sex: Male

DRUGS (1)
  1. EUCRISA [Suspect]
     Active Substance: CRISABOROLE
     Indication: DERMATITIS
     Dosage: UNK, 1X/DAY
     Route: 061
     Dates: start: 20180822

REACTIONS (5)
  - Pruritus [Unknown]
  - Drug ineffective [Unknown]
  - Product administration error [Unknown]
  - Product quality issue [Unknown]
  - Intentional dose omission [Unknown]
